FAERS Safety Report 5603384-1 (Version None)
Quarter: 2008Q1

REPORT INFORMATION
  Report Type: 
  Country: None (occurrence: None)
  Receive Date: 20080122
  Receipt Date: 20080104
  Transmission Date: 20080703
  Serious: Yes (Death)
  Sender: FDA-Public Use
  Company Number: S07-FRA-06428-01

PATIENT
  Age: 18 Year
  Sex: Female

DRUGS (9)
  1. ESCITALOPRAM [Suspect]
  2. CITALOPRAM HYDROBROMIDE [Suspect]
  3. ATARAX [Suspect]
  4. VALIUM [Suspect]
  5. OXAZEPAM [Suspect]
  6. TRANXENE [Concomitant]
  7. NOZINAN (LEVOMEPROMAZINE) [Concomitant]
  8. THERALENE (ALIMEMAZINE TARTRATE) [Concomitant]
  9. CHLORPROMAZINE HCL [Concomitant]

REACTIONS (2)
  - COMPLETED SUICIDE [None]
  - MULTIPLE DRUG OVERDOSE [None]
